FAERS Safety Report 6449033 (Version 3)
Quarter: 2013Q1

REPORT INFORMATION
  Report Type: Spontaneous
  Country: US (occurrence: US)
  Receive Date: 20071016
  Receipt Date: 20130121
  Transmission Date: 20140127
  Serious: Yes (Hospitalization)
  Sender: FDA-Public Use
  Company Number: 2007BI021305

PATIENT
  Age: 45 Year
  Sex: Female

DRUGS (3)
  1. AVONEX [Suspect]
     Indication: MULTIPLE SCLEROSIS
     Route: 030
     Dates: start: 20030425, end: 2004
  2. AVONEX [Suspect]
     Indication: MULTIPLE SCLEROSIS
     Route: 030
     Dates: start: 2004, end: 20080515
  3. DIAZEPAM [Concomitant]
     Indication: VERTIGO

REACTIONS (14)
  - Brain neoplasm benign [Recovered/Resolved]
  - Breast cancer stage I [Recovered/Resolved]
  - Hypoaesthesia [Recovered/Resolved]
  - Restless legs syndrome [Not Recovered/Not Resolved]
  - Seasonal allergy [Recovered/Resolved]
  - Memory impairment [Not Recovered/Not Resolved]
  - Cognitive disorder [Not Recovered/Not Resolved]
  - Vomiting [Recovered/Resolved]
  - Multiple sclerosis relapse [Recovered/Resolved]
  - Fatigue [Not Recovered/Not Resolved]
  - Pain in extremity [Not Recovered/Not Resolved]
  - Paraesthesia [Not Recovered/Not Resolved]
  - Drug specific antibody present [Unknown]
  - Influenza like illness [Recovered/Resolved]
